FAERS Safety Report 7430035-6 (Version None)
Quarter: 2011Q2

REPORT INFORMATION
  Report Type: 
  Country: None (occurrence: None)
  Receive Date: 20110410
  Receipt Date: 20110410
  Transmission Date: 20111010
  Serious: Yes (Hospitalization)
  Sender: FDA-Public Use
  Company Number: None

PATIENT
  Age: 27 Year
  Sex: Male
  Weight: 63.5036 kg

DRUGS (1)
  1. REMERON [Suspect]
     Indication: INSOMNIA
     Dates: start: 20110126, end: 20110208

REACTIONS (2)
  - MUSCLE SPASMS [None]
  - PAIN IN EXTREMITY [None]
